FAERS Safety Report 10659571 (Version 1)
Quarter: 2014Q4

REPORT INFORMATION
  Report Type: Spontaneous
  Country: US (occurrence: US)
  Receive Date: 20141217
  Receipt Date: 20141217
  Transmission Date: 20150529
  Serious: No
  Sender: FDA-Public Use
  Company Number: US-GLAXOSMITHKLINE-A1076686A

PATIENT

DRUGS (1)
  1. VOTRIENT [Suspect]
     Active Substance: PAZOPANIB HYDROCHLORIDE
     Indication: CHONDROSARCOMA
     Dosage: 200MG TABLETS X 3 = 600 MG TOTAL
     Route: 065
     Dates: end: 20140424

REACTIONS (2)
  - Drug ineffective [Unknown]
  - Hair colour changes [Unknown]
